FAERS Safety Report 4607372-3 (Version None)
Quarter: 2005Q1

REPORT INFORMATION
  Report Type: 
  Country: None (occurrence: None)
  Receive Date: 20050311
  Receipt Date: 20050311
  Transmission Date: 20050727
  Serious: Yes (Life-Threatening, Hospitalization)
  Sender: FDA-Public Use
  Company Number: None

PATIENT
  Age: 78 Year
  Sex: Male
  Weight: 77.1115 kg

DRUGS (1)
  1. HUMULIN 70/30 [Suspect]
     Indication: DIABETES MELLITUS
     Dosage: 37 UNITS SQ  Q AM : 17 UNITS SQ  Q PM
     Dates: start: 20041119, end: 20041121

REACTIONS (2)
  - HYPOGLYCAEMIA [None]
  - TREATMENT NONCOMPLIANCE [None]
